FAERS Safety Report 19518652 (Version 1)
Quarter: 2021Q3

REPORT INFORMATION
  Report Type: Spontaneous
  Country: US (occurrence: US)
  Receive Date: 20210712
  Receipt Date: 20210712
  Transmission Date: 20211014
  Serious: No
  Sender: FDA-Public Use
  Company Number: US-ALLERGAN-2120326US

PATIENT

DRUGS (2)
  1. UBRELVY [Suspect]
     Active Substance: UBROGEPANT
     Indication: MIGRAINE
     Dosage: 50 MG
  2. UBRELVY [Suspect]
     Active Substance: UBROGEPANT
     Dosage: 100 MG

REACTIONS (2)
  - Drug ineffective [Unknown]
  - Migraine [Unknown]
